FAERS Safety Report 24064219 (Version 1)
Quarter: 2024Q3

REPORT INFORMATION
  Report Type: Report from Study
  Country: GB (occurrence: GB)
  Receive Date: 20240709
  Receipt Date: 20240709
  Transmission Date: 20241016
  Serious: Yes (Other)
  Sender: NOVARTIS
  Company Number: GB-002147023-NVSC2024GB002993

PATIENT
  Age: 52 Year
  Sex: Female

DRUGS (3)
  1. MAYZENT [Suspect]
     Active Substance: SIPONIMOD
     Indication: Secondary progressive multiple sclerosis
     Dosage: 0.25 MG, QD
     Route: 048
     Dates: start: 20240105
  2. MAYZENT [Suspect]
     Active Substance: SIPONIMOD
     Dosage: 0.5 MG, QD
     Route: 048
     Dates: start: 20240105
  3. MAYZENT [Suspect]
     Active Substance: SIPONIMOD
     Dosage: 2 MG, QD
     Route: 048
     Dates: start: 20240105, end: 20240626

REACTIONS (7)
  - Malignant melanoma [Unknown]
  - Back pain [Recovered/Resolved]
  - Neck pain [Recovered/Resolved]
  - Dizziness [Not Recovered/Not Resolved]
  - Pain in extremity [Recovered/Resolved]
  - Fall [Not Recovered/Not Resolved]
  - Melanocytic naevus [Not Recovered/Not Resolved]

NARRATIVE: CASE EVENT DATE: 20240105
